FAERS Safety Report 24254282 (Version 2)
Quarter: 2024Q4

REPORT INFORMATION
  Report Type: Report from Study
  Country: US (occurrence: US)
  Receive Date: 20240827
  Receipt Date: 20241029
  Transmission Date: 20250115
  Serious: Yes (Other)
  Sender: MYLAN
  Company Number: US-MYLANLABS-2024M1077599

PATIENT
  Age: 72 Year
  Sex: Female
  Weight: 68.03 kg

DRUGS (1)
  1. ATORVASTATIN CALCIUM [Suspect]
     Active Substance: ATORVASTATIN CALCIUM
     Indication: Blood cholesterol increased
     Dosage: 20 MILLIGRAM, QD (DAILY)
     Route: 065
     Dates: start: 2004, end: 2016

REACTIONS (1)
  - Peptic ulcer [Unknown]
